FAERS Safety Report 9415348 (Version 5)
Quarter: 2014Q1

REPORT INFORMATION
  Report Type: Spontaneous
  Country: US (occurrence: US)
  Receive Date: 20130723
  Receipt Date: 20140110
  Transmission Date: 20141002
  Serious: No
  Sender: FDA-Public Use
  Company Number: US-PFIZER INC-2013212451

PATIENT
  Age: 62 Year
  Sex: Female
  Weight: 107 kg

DRUGS (6)
  1. XALKORI [Suspect]
     Indication: LUNG CANCER METASTATIC
     Dosage: 250 MG, 2X/DAY
     Route: 048
     Dates: end: 20130719
  2. XALKORI [Suspect]
     Dosage: 250 UNK, 1X/DAY
     Route: 048
     Dates: start: 20130718, end: 20130723
  3. HYDROCHLOROTHIAZIDE [Concomitant]
     Indication: OEDEMA
     Dosage: 25 MG, UNK
     Dates: start: 20130430
  4. DEXAMETHASONE [Concomitant]
     Dosage: UNK
  5. METFORMIN [Concomitant]
     Dosage: UNK
  6. PANTOPRAZOLE [Concomitant]
     Dosage: UNK

REACTIONS (4)
  - Weight increased [Recovered/Resolved]
  - Swelling [Not Recovered/Not Resolved]
  - Nausea [Recovered/Resolved]
  - Abdominal pain upper [Unknown]
